FAERS Safety Report 11592474 (Version 2)
Quarter: 2015Q4

REPORT INFORMATION
  Report Type: Spontaneous
  Country: US (occurrence: US)
  Receive Date: 20151005
  Receipt Date: 20151211
  Transmission Date: 20160304
  Serious: Yes (Life-Threatening, Hospitalization, Disabling)
  Sender: FDA-Public Use
  Company Number: US-BAYER-2015-433229

PATIENT
  Age: 18 Year
  Sex: Female
  Weight: 66.67 kg

DRUGS (1)
  1. MIRENA [Suspect]
     Active Substance: LEVONORGESTREL
     Indication: CONTRACEPTION
     Dosage: 20 MCG/24HR, CONT
     Route: 015
     Dates: start: 20111227, end: 20140917

REACTIONS (7)
  - Pelvic pain [None]
  - General physical health deterioration [None]
  - Injury [None]
  - Uterine perforation [None]
  - Device dislocation [None]
  - Balance disorder [None]
  - Device use error [None]

NARRATIVE: CASE EVENT DATE: 20130827
